FAERS Safety Report 18318384 (Version 1)
Quarter: 2020Q3

REPORT INFORMATION
  Report Type: Spontaneous
  Country: CA (occurrence: CA)
  Receive Date: 20200928
  Receipt Date: 20200928
  Transmission Date: 20201103
  Serious: Yes (Other)
  Sender: FDA-Public Use
  Company Number: CA-ROCHE-2683100

PATIENT
  Age: 30 Year
  Sex: Female

DRUGS (9)
  1. BACLOFEN. [Concomitant]
     Active Substance: BACLOFEN
  2. NABILONE [Concomitant]
     Active Substance: NABILONE
  3. GABAPENTIN. [Concomitant]
     Active Substance: GABAPENTIN
  4. MYRBETRIQ [Concomitant]
     Active Substance: MIRABEGRON
  5. APO?HYDROXYQUINE [Concomitant]
     Active Substance: HYDROXYCHLOROQUINE SULFATE
  6. OCREVUS [Suspect]
     Active Substance: OCRELIZUMAB
     Indication: RELAPSING-REMITTING MULTIPLE SCLEROSIS
     Dosage: 300 MG DAY 0,AND DAY 15. 600 MG IV EVERY 6 MONTH
     Route: 042
     Dates: start: 20200311
  7. PERINDOPRIL [Concomitant]
     Active Substance: PERINDOPRIL
  8. ESCITALOPRAM [Concomitant]
     Active Substance: ESCITALOPRAM OXALATE
  9. VALPROIC ACID. [Concomitant]
     Active Substance: VALPROIC ACID

REACTIONS (1)
  - Thyroid cancer [Not Recovered/Not Resolved]

NARRATIVE: CASE EVENT DATE: 20200608
